FAERS Safety Report 5130340-2 (Version None)
Quarter: 2006Q4

REPORT INFORMATION
  Report Type: 
  Country: None (occurrence: None)
  Receive Date: 20061019
  Receipt Date: 20060907
  Transmission Date: 20070319
  Serious: Yes (Other)
  Sender: FDA-Public Use
  Company Number: PHBS2006JP13732

PATIENT
  Age: 55 Year
  Sex: Female
  Weight: 48 kg

DRUGS (11)
  1. VOLTAREN [Suspect]
     Indication: OSTEOARTHRITIS
     Dosage: 75 MG/DAY
     Route: 048
     Dates: start: 20060906, end: 20060919
  2. VOLTAREN [Suspect]
     Dosage: UNK, PRN
     Dates: start: 20060920
  3. HYDANTOL [Concomitant]
     Indication: EPILEPSY
     Dosage: 175 MG/DAY
     Route: 048
     Dates: start: 19790101
  4. RIVOTRIL [Concomitant]
     Indication: EPILEPSY
     Dosage: 2 MG/DAY
     Route: 048
     Dates: start: 19790101
  5. EXCEGRAN [Concomitant]
     Dosage: 300 MG/DAY
     Route: 048
     Dates: start: 19790101
  6. LEXIN [Concomitant]
     Indication: EPILEPSY
     Dosage: 600 MG/DAY
     Route: 048
     Dates: start: 19790101
  7. ALFACALCIDOL [Concomitant]
     Indication: OSTEOPOROSIS
     Dosage: 1 UG/DAY
     Route: 048
     Dates: start: 19880403
  8. URSO [Concomitant]
     Indication: HEPATIC FUNCTION ABNORMAL
     Dosage: 150 MG/DAY
     Route: 048
     Dates: start: 19960620
  9. NEULEPTIL [Concomitant]
     Indication: NERVE INJURY
     Dosage: 5 MG/DAY
     Route: 048
     Dates: start: 19790327
  10. ZYPREXA [Concomitant]
     Indication: NERVE INJURY
     Dosage: 5 MG/DAY
     Route: 048
     Dates: start: 20060121
  11. LENDORMIN [Concomitant]
     Indication: INSOMNIA
     Dosage: 0.25 MG/DAY
     Route: 048

REACTIONS (2)
  - CONDITION AGGRAVATED [None]
  - EPILEPSY [None]
